FAERS Safety Report 8056936-6 (Version None)
Quarter: 2012Q1

REPORT INFORMATION
  Report Type: 
  Country: None (occurrence: None)
  Receive Date: 20120119
  Receipt Date: 20120111
  Transmission Date: 20120608
  Serious: Yes (Hospitalization, Other)
  Sender: FDA-Public Use
  Company Number: US-ACTELION-A-NJ2011-57849

PATIENT

DRUGS (3)
  1. TRACLEER [Suspect]
     Indication: PULMONARY ARTERIAL HYPERTENSION
     Dosage: UNK
     Route: 048
     Dates: start: 20110322
  2. COUMADIN [Concomitant]
  3. OXYGEN [Concomitant]

REACTIONS (4)
  - NEPHROSTOMY TUBE PLACEMENT [None]
  - PAIN [None]
  - BLADDER OPERATION [None]
  - DRUG DOSE OMISSION [None]
